FAERS Safety Report 16839432 (Version 1)
Quarter: 2019Q3

REPORT INFORMATION
  Report Type: Spontaneous
  Country: US (occurrence: US)
  Receive Date: 20190731
  Receipt Date: 20190731
  Transmission Date: 20191005
  Serious: Yes (Disabling, Other)
  Sender: FDA-Public Use
  Company Number: None

PATIENT

DRUGS (1)
  1. CIPROFLOXACIN 500MG TABLET [Suspect]
     Active Substance: CIPROFLOXACIN
     Indication: DIVERTICULITIS
     Dosage: ?          QUANTITY:20 TOT - TOTAL;?
     Route: 048
     Dates: start: 20190613, end: 20190616

REACTIONS (4)
  - Arthralgia [None]
  - Gait disturbance [None]
  - Pyrexia [None]
  - Joint swelling [None]

NARRATIVE: CASE EVENT DATE: 20190613
